FAERS Safety Report 8808396 (Version 1)
Quarter: 2012Q4

REPORT INFORMATION
  Report Type: Spontaneous
  Country: US (occurrence: None)
  Receive Date: 20120920
  Receipt Date: 20120920
  Transmission Date: 20130627
  Serious: Yes (Hospitalization, Other)
  Sender: FDA-Public Use
  Company Number: AXC-2012-000414

PATIENT
  Age: 53 Year
  Sex: Male
  Weight: 120.2 kg

DRUGS (4)
  1. BENTYL [Suspect]
     Indication: STOMACH CRAMPS
     Dosage: 20 mg, single, intravenous
     Route: 042
     Dates: start: 20120815, end: 20120815
  2. BENTYL [Suspect]
     Indication: STOMACH VIRUS
     Dosage: 20 mg, single, intravenous
     Route: 042
     Dates: start: 20120815, end: 20120815
  3. BENTYL [Suspect]
     Indication: STOMACH CRAMPS
     Dosage: 20 mg, single, Oral
     Route: 048
     Dates: start: 20120816, end: 20120816
  4. BENTYL [Suspect]
     Indication: STOMACH VIRUS
     Dosage: 20 mg, single, Oral
     Route: 048
     Dates: start: 20120816, end: 20120816

REACTIONS (11)
  - Blindness [None]
  - Visual field defect [None]
  - Hallucination [None]
  - Heart rate increased [None]
  - Blood pressure increased [None]
  - Headache [None]
  - Heart rate decreased [None]
  - Blood pressure decreased [None]
  - Palpitations [None]
  - Constipation [None]
  - Incorrect route of drug administration [None]
